FAERS Safety Report 5002355-6 (Version None)
Quarter: 2006Q2

REPORT INFORMATION
  Report Type: 
  Country: None (occurrence: None)
  Receive Date: 20060512
  Receipt Date: 20060427
  Transmission Date: 20061013
  Serious: Yes (Other)
  Sender: FDA-Public Use
  Company Number: KR200605000016

PATIENT
  Sex: Male

DRUGS (3)
  1. GEMZAR [Suspect]
     Dosage: 900 MG/M2, OTHER, INTRAVENOUS
     Route: 042
  2. VINORELBINE [Concomitant]
  3. CAPECITABINE [Concomitant]

REACTIONS (2)
  - DRUG TOXICITY [None]
  - PNEUMONIA KLEBSIELLA [None]
